FAERS Safety Report 7591483-7 (Version None)
Quarter: 2011Q3

REPORT INFORMATION
  Report Type: 
  Country: None (occurrence: None)
  Receive Date: 20110701
  Receipt Date: 20110701
  Transmission Date: 20111222
  Serious: Yes (Other)
  Sender: FDA-Public Use
  Company Number: None

PATIENT
  Age: 57 Year
  Sex: Male
  Weight: 74.8435 kg

DRUGS (1)
  1. PROZAC [Suspect]
     Indication: DEPRESSION
     Dosage: 1 DAILY PO
     Route: 048
     Dates: start: 20030101

REACTIONS (5)
  - ANORGASMIA [None]
  - ANGER [None]
  - FRUSTRATION [None]
  - SEXUAL DYSFUNCTION [None]
  - DISSOCIATION [None]
